FAERS Safety Report 4553071-6 (Version None)
Quarter: 2005Q1

REPORT INFORMATION
  Report Type: 
  Country: None (occurrence: None)
  Receive Date: 20050113
  Receipt Date: 20050103
  Transmission Date: 20050727
  Serious: Yes (Death, Other)
  Sender: FDA-Public Use
  Company Number: 2005002090

PATIENT
  Age: 26 Year
  Sex: Female
  Weight: 68 kg

DRUGS (4)
  1. GENOTROPIN [Suspect]
     Indication: HYPOPITUITARISM
     Dosage: 1 MG (1 MG, DAILY)
     Dates: start: 19970710, end: 20040113
  2. VALPROIC ACID [Concomitant]
  3. TOPIRAMATE [Concomitant]
  4. OXCARBAZEPINE (OXCARBAZEPINE) [Concomitant]

REACTIONS (4)
  - CERVICAL VERTEBRAL FRACTURE [None]
  - COMPLETED SUICIDE [None]
  - DRUG INEFFECTIVE [None]
  - MAJOR DEPRESSION [None]
